FAERS Safety Report 23869940 (Version 1)
Quarter: 2024Q2

REPORT INFORMATION
  Report Type: Spontaneous
  Country: US (occurrence: US)
  Receive Date: 20240517
  Receipt Date: 20240517
  Transmission Date: 20240716
  Serious: No
  Sender: FDA-Public Use
  Company Number: US-SA-SAC20240509001237

PATIENT
  Sex: Female
  Weight: 16.46 kg

DRUGS (1)
  1. DUPIXENT [Suspect]
     Active Substance: DUPILUMAB
     Indication: Eosinophilic oesophagitis
     Dosage: 200 MG QOW
     Route: 058

REACTIONS (2)
  - Injection site urticaria [Unknown]
  - Injection site pruritus [Recovered/Resolved]
